FAERS Safety Report 13696046 (Version 2)
Quarter: 2017Q3

REPORT INFORMATION
  Report Type: Spontaneous
  Country: DE (occurrence: DE)
  Receive Date: 20170628
  Receipt Date: 20170719
  Transmission Date: 20171127
  Serious: Yes (Other)
  Sender: FDA-Public Use
  Company Number: DE-TORRENT-00006632

PATIENT
  Age: 47 Year
  Sex: Female

DRUGS (6)
  1. PANTOPRAZOLE [Concomitant]
     Active Substance: PANTOPRAZOLE
  2. CLOZAPINE. [Suspect]
     Active Substance: CLOZAPINE
  3. RAMIPRIL. [Concomitant]
     Active Substance: RAMIPRIL
  4. METOPROLOL. [Concomitant]
     Active Substance: METOPROLOL
  5. VENLAFAXINE [Suspect]
     Active Substance: VENLAFAXINE HYDROCHLORIDE
  6. AMISULPRIDE [Suspect]
     Active Substance: AMISULPRIDE

REACTIONS (2)
  - Weight increased [Recovering/Resolving]
  - Metabolic syndrome [Recovering/Resolving]

NARRATIVE: CASE EVENT DATE: 20150617
